FAERS Safety Report 19707509 (Version 4)
Quarter: 2022Q1

REPORT INFORMATION
  Report Type: Spontaneous
  Country: US (occurrence: US)
  Receive Date: 20210817
  Receipt Date: 20220325
  Transmission Date: 20220423
  Serious: No
  Sender: FDA-Public Use
  Company Number: US-VERTEX PHARMACEUTICALS-2021-007862

PATIENT
  Age: 24 Year
  Sex: Female

DRUGS (38)
  1. TRIKAFTA [Suspect]
     Active Substance: ELEXACAFTOR\IVACAFTOR\TEZACAFTOR
     Indication: Cystic fibrosis
     Dosage: 2 TABS IN AM AND 1 TAB IN PM
     Route: 048
     Dates: start: 20191115
  2. ALBUTEROL [Concomitant]
     Active Substance: ALBUTEROL
  3. AZITHROMYCIN [Concomitant]
     Active Substance: AZITHROMYCIN
  4. CAYSTON [Concomitant]
     Active Substance: AZTREONAM
  5. BUPROPION HYDROCHLORIDE XL [Concomitant]
     Active Substance: BUPROPION HYDROCHLORIDE
  6. CALCIUM CARBONATE [Concomitant]
     Active Substance: CALCIUM CARBONATE
  7. CETIRIZINE [Concomitant]
     Active Substance: CETIRIZINE HYDROCHLORIDE
  8. CICLOPIROX [Concomitant]
     Active Substance: CICLOPIROX
  9. CLOBETASOL [Concomitant]
     Active Substance: CLOBETASOL
  10. COENZYME Q10 [Concomitant]
     Active Substance: DIETARY SUPPLEMENT\UBIDECARENONE
  11. FLONASE ALLERGY RELIEF [Concomitant]
     Active Substance: FLUTICASONE PROPIONATE
  12. FLUOXETINE [Concomitant]
     Active Substance: FLUOXETINE HYDROCHLORIDE
  13. FLUTICASONE [Concomitant]
     Active Substance: FLUTICASONE
  14. GINSENG AMERICANO [Concomitant]
  15. HYDROXYZINE PAMOATE [Concomitant]
     Active Substance: HYDROXYZINE PAMOATE
  16. LANTUS [Concomitant]
     Active Substance: INSULIN GLARGINE
  17. LEVALBUTEROL [Concomitant]
     Active Substance: LEVALBUTEROL
  18. LORAZEPAM [Concomitant]
     Active Substance: LORAZEPAM
  19. LYUMJEV [Concomitant]
     Active Substance: INSULIN LISPRO-AABC
  20. MAGNESIUM [Concomitant]
     Active Substance: MAGNESIUM
  21. MELATONIN [Concomitant]
     Active Substance: MELATONIN
  22. ACETYLCYSTEINE [Concomitant]
     Active Substance: ACETYLCYSTEINE
  23. NOVOLOG [Concomitant]
     Active Substance: INSULIN ASPART
     Dosage: 70/30
  24. FISH OIL [Concomitant]
     Active Substance: FISH OIL
  25. OMEPRAZOLE [Concomitant]
     Active Substance: OMEPRAZOLE
  26. PREDNISONE [Concomitant]
     Active Substance: PREDNISONE
  27. PULMOZYME [Concomitant]
     Active Substance: DORNASE ALFA
  28. SODIUM CHLORIDE [Concomitant]
     Active Substance: SODIUM CHLORIDE
  29. SODIUM CHLORIDE [Concomitant]
     Active Substance: SODIUM CHLORIDE
     Dosage: 7%
     Route: 055
  30. SYMBICORT [Concomitant]
     Active Substance: BUDESONIDE\FORMOTEROL FUMARATE DIHYDRATE
  31. CYANOCOBALAMIN\FOLIC ACID [Concomitant]
     Active Substance: CYANOCOBALAMIN\FOLIC ACID
  32. VITAMIN D3 [Concomitant]
     Active Substance: CHOLECALCIFEROL
  33. VITAMIN C [Concomitant]
     Active Substance: ASCORBIC ACID
  34. VITAMIN E [Concomitant]
     Active Substance: .ALPHA.-TOCOPHEROL
  35. VITAMIN K [Concomitant]
     Active Substance: PHYTONADIONE
  36. ZENPEP [Concomitant]
     Active Substance: PANCRELIPASE AMYLASE\PANCRELIPASE LIPASE\PANCRELIPASE PROTEASE
  37. ZOLOFT [Concomitant]
     Active Substance: SERTRALINE HYDROCHLORIDE
  38. SODIUM CHLORIDE [Concomitant]
     Active Substance: SODIUM CHLORIDE

REACTIONS (5)
  - Obsessive-compulsive disorder [Not Recovered/Not Resolved]
  - Depression [Unknown]
  - Stress [Unknown]
  - Anxiety [Unknown]
  - Mental disorder [Not Recovered/Not Resolved]

NARRATIVE: CASE EVENT DATE: 20210401
